FAERS Safety Report 24713644 (Version 1)
Quarter: 2024Q4

REPORT INFORMATION
  Report Type: Spontaneous
  Country: US (occurrence: US)
  Receive Date: 20241209
  Receipt Date: 20241209
  Transmission Date: 20250115
  Serious: No
  Sender: REGENERON
  Company Number: US-REGENERON PHARMACEUTICALS, INC.-2024-042905

PATIENT
  Sex: Male

DRUGS (2)
  1. EYLEA [Suspect]
     Active Substance: AFLIBERCEPT
     Indication: Macular degeneration
     Dosage: UNK, INTO LEFT EYE (TREATMENT IN BOTH EYES), FORMULATION: VIAL
  2. EYLEA [Suspect]
     Active Substance: AFLIBERCEPT
     Dosage: UNK, INTO RIGHT EYE, FORMULATION: VIAL, STOPPED POSSIBLY APPROX. 10 YEARS AGO

REACTIONS (2)
  - Eye haemorrhage [Unknown]
  - Retinal scar [Unknown]
